FAERS Safety Report 18973654 (Version 1)
Quarter: 2021Q1

REPORT INFORMATION
  Report Type: Report from Study
  Country: GB (occurrence: GB)
  Receive Date: 20210305
  Receipt Date: 20210305
  Transmission Date: 20210420
  Serious: Yes (Other)
  Sender: FDA-Public Use
  Company Number: GB-PFIZER INC-2021186750

PATIENT
  Age: 60 Year
  Sex: Male

DRUGS (3)
  1. METHOTREXATE SODIUM. [Suspect]
     Active Substance: METHOTREXATE SODIUM
     Dosage: UNKNOWN
     Route: 065
  2. METHOTREXATE SODIUM. [Suspect]
     Active Substance: METHOTREXATE SODIUM
     Dosage: UNKNOWN
     Route: 065
  3. IMRALDI [Suspect]
     Active Substance: ADALIMUMAB
     Indication: PSORIATIC ARTHROPATHY
     Dosage: 40 MG, 2X/WEEK
     Route: 058

REACTIONS (7)
  - Drug ineffective [Unknown]
  - Psoriatic arthropathy [Unknown]
  - Headache [Unknown]
  - Loss of personal independence in daily activities [Unknown]
  - Hepatic function abnormal [Unknown]
  - Poor quality sleep [Unknown]
  - Injection site pain [Unknown]
